FAERS Safety Report 7626559-9 (Version None)
Quarter: 2011Q3

REPORT INFORMATION
  Report Type: 
  Country: None (occurrence: None)
  Receive Date: 20110721
  Receipt Date: 20110630
  Transmission Date: 20111222
  Serious: Yes (Other)
  Sender: FDA-Public Use
  Company Number: US-GLAXOSMITHKLINE-B0696030A

PATIENT
  Age: 59 Year
  Sex: Female

DRUGS (6)
  1. SYNTHROID [Concomitant]
  2. GLIPIZIDE [Concomitant]
  3. HYDROCHLOROTHIAZIDE [Concomitant]
  4. AVANDIA [Suspect]
     Indication: DIABETES MELLITUS
     Dosage: 4MG TWICE PER DAY
     Route: 048
     Dates: start: 20031015, end: 20070101
  5. GLUCOPHAGE [Concomitant]
  6. LISINOPRIL [Concomitant]

REACTIONS (2)
  - CARDIAC FAILURE CONGESTIVE [None]
  - PULMONARY HYPERTENSION [None]
